FAERS Safety Report 7608499-4 (Version None)
Quarter: 2011Q3

REPORT INFORMATION
  Report Type: 
  Country: None (occurrence: None)
  Receive Date: 20110714
  Receipt Date: 20110708
  Transmission Date: 20111222
  Serious: Yes (Other)
  Sender: FDA-Public Use
  Company Number: DE-BRISTOL-MYERS SQUIBB COMPANY-15884562

PATIENT
  Age: 14 Year
  Sex: Male

DRUGS (3)
  1. METHYLPHENIDATE HCL [Suspect]
  2. ABILIFY [Suspect]
  3. RITALIN [Suspect]

REACTIONS (1)
  - WITHDRAWAL SYNDROME [None]
